FAERS Safety Report 11515959 (Version 1)
Quarter: 2015Q3

REPORT INFORMATION
  Report Type: Spontaneous
  Country: US (occurrence: US)
  Receive Date: 20150916
  Receipt Date: 20150916
  Transmission Date: 20151125
  Serious: No
  Sender: FDA-Public Use
  Company Number: US-GLENMARK PHARMACEUTICALS INC, USA.-2014GMK011286

PATIENT
  Sex: Female

DRUGS (1)
  1. HEATHER [Suspect]
     Active Substance: NORETHINDRONE
     Dosage: 0.35 MG, OD
     Route: 048
     Dates: start: 201404, end: 201404

REACTIONS (1)
  - Therapy cessation [Unknown]
